FAERS Safety Report 4428287-X (Version None)
Quarter: 2004Q3

REPORT INFORMATION
  Report Type: 
  Country: None (occurrence: None)
  Receive Date: 20040818
  Receipt Date: 20040701
  Transmission Date: 20050211
  Serious: Yes (Disabling)
  Sender: FDA-Public Use
  Company Number: US-BRISTOL-MYERS SQUIBB COMPANY-12629663

PATIENT
  Age: 81 Year
  Sex: Female
  Weight: 26 kg

DRUGS (11)
  1. TEQUIN [Suspect]
     Indication: EXCORIATION
     Dosage: 400 MG ON  21-JUN-2004, REDUCED TO 200 MG ON 22-23-JUN-2004
     Route: 042
     Dates: start: 20040621, end: 20040623
  2. ASPIRIN [Concomitant]
  3. PLAVIX [Concomitant]
  4. ALPHAGAN [Concomitant]
     Route: 047
  5. CITRIC ACID [Concomitant]
  6. PEPCID [Concomitant]
  7. ESTROGEN [Concomitant]
     Route: 061
  8. CLARITIN [Concomitant]
  9. SIMVASTATIN [Concomitant]
  10. ULTRAM [Concomitant]
  11. ZOLOFT [Concomitant]

REACTIONS (1)
  - DEAFNESS [None]
